FAERS Safety Report 5016361-9 (Version None)
Quarter: 2006Q2

REPORT INFORMATION
  Report Type: 
  Country: None (occurrence: None)
  Receive Date: 20060425
  Receipt Date: 20060113
  Transmission Date: 20061013
  Serious: Yes (Other)
  Sender: FDA-Public Use
  Company Number: 2006-BP-00534BP

PATIENT
  Sex: Female

DRUGS (3)
  1. APTIVUS [Suspect]
     Indication: HIV INFECTION
     Dosage: (SEE TEXT PO
     Route: 048
  2. RITONAVIR CAPSULES [Suspect]
     Indication: HIV INFECTION
     Dosage: SEE TEXT  PO
     Route: 048
  3. DIDANOSINE [Suspect]
     Indication: HIV INFECTION
     Dosage: (100 MG), PO
     Route: 048

REACTIONS (3)
  - HEPATOMEGALY [None]
  - LIVER FUNCTION TEST ABNORMAL [None]
  - PANCREATITIS [None]
